FAERS Safety Report 18263723 (Version 1)
Quarter: 2020Q3

REPORT INFORMATION
  Report Type: Spontaneous
  Country: FR (occurrence: FR)
  Receive Date: 20200914
  Receipt Date: 20200914
  Transmission Date: 20201103
  Serious: Yes (Life-Threatening)
  Sender: FDA-Public Use
  Company Number: FR-ALLERGAN-2034535US

PATIENT
  Sex: Female
  Weight: 76 kg

DRUGS (8)
  1. SERESTA [Suspect]
     Active Substance: OXAZEPAM
     Indication: POISONING DELIBERATE
     Route: 048
     Dates: start: 20200807, end: 20200807
  2. ESCITALOPRAM OXALATE ? BP [Suspect]
     Active Substance: ESCITALOPRAM OXALATE
     Indication: POISONING DELIBERATE
     Dosage: 13 DF
     Route: 048
     Dates: start: 20200807, end: 20200807
  3. GLICLAZIDE [Suspect]
     Active Substance: GLICLAZIDE
     Indication: POISONING DELIBERATE
     Dosage: UNK
     Route: 048
     Dates: start: 20200807, end: 20200807
  4. ALPRAZOLAM. [Suspect]
     Active Substance: ALPRAZOLAM
     Indication: POISONING DELIBERATE
     Dosage: 33 DF
     Route: 048
     Dates: start: 20200807, end: 20200807
  5. DOLIPRANE [Suspect]
     Active Substance: ACETAMINOPHEN
     Indication: POISONING DELIBERATE
     Route: 048
     Dates: start: 20200807, end: 20200807
  6. LANSOPRAZOLE. [Suspect]
     Active Substance: LANSOPRAZOLE
     Indication: POISONING DELIBERATE
     Dosage: UNK
     Route: 048
     Dates: start: 20200807, end: 20200807
  7. LOXAPAC [Suspect]
     Active Substance: LOXAPINE
     Indication: POISONING DELIBERATE
     Dosage: 30 DF
     Route: 048
     Dates: start: 20200807, end: 20200807
  8. ZOPICLONE [Suspect]
     Active Substance: ZOPICLONE
     Indication: POISONING DELIBERATE
     Dosage: 14 DF
     Route: 048
     Dates: start: 20200807, end: 20200807

REACTIONS (2)
  - Coma [Recovered/Resolved]
  - Intentional overdose [Unknown]

NARRATIVE: CASE EVENT DATE: 20200807
